FAERS Safety Report 12093701 (Version 1)
Quarter: 2016Q1

REPORT INFORMATION
  Report Type: Spontaneous
  Country: US (occurrence: None)
  Receive Date: 20160218
  Receipt Date: 20160218
  Transmission Date: 20160526
  Serious: Yes (Other)
  Sender: FDA-Public Use
  Company Number: None

PATIENT
  Age: 56 Year
  Sex: Female

DRUGS (16)
  1. GLUCOSAMINE/CHONDROITIN /08437701/ [Concomitant]
     Active Substance: CHONDROITIN SULFATE (BOVINE)\GLUCOSAMINE SULFATE
  2. VITAMIN C [Concomitant]
     Active Substance: ASCORBIC ACID
  3. FLORAJEN ACIDOPHILUS [Concomitant]
  4. NAMBUETONE [Concomitant]
  5. OFLOXACIN. [Concomitant]
     Active Substance: OFLOXACIN
  6. ALTABAX [Concomitant]
     Active Substance: RETAPAMULIN
  7. BENICAR HCT [Concomitant]
     Active Substance: HYDROCHLOROTHIAZIDE\OLMESARTAN MEDOXOMIL
  8. MAGNESIUM [Concomitant]
     Active Substance: MAGNESIUM
  9. XELJANZ [Suspect]
     Active Substance: TOFACITINIB CITRATE
     Indication: RHEUMATOID ARTHRITIS
     Dosage: 1 BID ORAL
     Route: 048
     Dates: start: 20160118
  10. AMLODIPINE [Concomitant]
     Active Substance: AMLODIPINE BESYLATE
  11. BACTRIM DS [Concomitant]
     Active Substance: SULFAMETHOXAZOLE\TRIMETHOPRIM
  12. FOLIC ACID. [Concomitant]
     Active Substance: FOLIC ACID
  13. PLAQUENIL [Concomitant]
     Active Substance: HYDROXYCHLOROQUINE SULFATE
  14. VITAMIN B COMPLEX WITH C [Concomitant]
     Active Substance: ASCORBIC ACID\CALCIUM PANTOTHENATE\CYANOCOBALAMIN\NIACINAMIDE\PYRIDOXINE HYDROCHLORIDE\RIBOFLAVIN\THIAMINE MONONITRATE
  15. CALCIUM [Concomitant]
     Active Substance: CALCIUM
  16. TREXIMET [Concomitant]
     Active Substance: NAPROXEN SODIUM\SUMATRIPTAN SUCCINATE

REACTIONS (6)
  - Rheumatoid arthritis [None]
  - Drug ineffective [None]
  - Condition aggravated [None]
  - Tendon pain [None]
  - Joint swelling [None]
  - Myalgia [None]

NARRATIVE: CASE EVENT DATE: 20160118
